FAERS Safety Report 8380185-5 (Version None)
Quarter: 2012Q2

REPORT INFORMATION
  Report Type: 
  Country: None (occurrence: None)
  Receive Date: 20120523
  Receipt Date: 20120518
  Transmission Date: 20120825
  Serious: Yes (Hospitalization)
  Sender: FDA-Public Use
  Company Number: US-PFIZER INC-2012122292

PATIENT
  Sex: Male
  Weight: 79.4 kg

DRUGS (6)
  1. HYDROCODONE [Concomitant]
     Indication: BREAKTHROUGH PAIN
     Dosage: 5/500
  2. SUTENT [Suspect]
     Indication: METASTATIC RENAL CELL CARCINOMA
     Dosage: 50 MG, UNK
     Dates: start: 20120427, end: 20120510
  3. HYDROCODONE [Concomitant]
     Dosage: 5/350
  4. LIPITOR [Concomitant]
     Dosage: 20 MG, UNK
  5. FENTANYL [Concomitant]
     Dosage: 25 UG, PATCH EVERY 72 HOURS
  6. ZETIA [Concomitant]
     Dosage: UNK

REACTIONS (8)
  - WEIGHT DECREASED [None]
  - FALL [None]
  - HUMERUS FRACTURE [None]
  - DECREASED APPETITE [None]
  - BLOOD BILIRUBIN INCREASED [None]
  - YELLOW SKIN [None]
  - DYSGEUSIA [None]
  - LOSS OF CONSCIOUSNESS [None]
